FAERS Safety Report 18457038 (Version 3)
Quarter: 2020Q4

REPORT INFORMATION
  Report Type: Spontaneous
  Country: US (occurrence: US)
  Receive Date: 20201103
  Receipt Date: 20201229
  Transmission Date: 20210114
  Serious: No
  Sender: FDA-Public Use
  Company Number: US-AMGEN-USASP2020176703

PATIENT
  Age: 50 Year
  Sex: Female

DRUGS (5)
  1. VENLAFAXINE [Concomitant]
     Active Substance: VENLAFAXINE HYDROCHLORIDE
     Dosage: 75 MILLIGRAM
  2. AMOXICILLIN AND POTASSIUM CLAVULANATE [Concomitant]
     Dosage: UNK (875-125)
  3. OTEZLA [Suspect]
     Active Substance: APREMILAST
     Indication: GUTTATE PSORIASIS
     Dosage: 30 MILLIGRAM, BID
     Route: 048
     Dates: start: 20200929
  4. OTEZLA [Suspect]
     Active Substance: APREMILAST
     Indication: PAIN
  5. VALACYCLOVIR HCL [Concomitant]
     Active Substance: VALACYCLOVIR HYDROCHLORIDE
     Dosage: UNK

REACTIONS (3)
  - Headache [Not Recovered/Not Resolved]
  - Guttate psoriasis [Not Recovered/Not Resolved]
  - Product dose omission issue [Unknown]

NARRATIVE: CASE EVENT DATE: 2020
